FAERS Safety Report 10037341 (Version 2)
Quarter: 2014Q2

REPORT INFORMATION
  Report Type: Spontaneous
  Country: GB (occurrence: None)
  Receive Date: 20140324
  Receipt Date: 20140623
  Transmission Date: 20141212
  Serious: Yes (Other)
  Sender: FDA-Public Use
  Company Number: AUR-APL-2014-03148

PATIENT
  Age: 63 Year
  Sex: Male
  Weight: 97 kg

DRUGS (4)
  1. SIMVASTATIN 40MG (SIMVASTATIN) UNKNOWN, 40MG [Suspect]
     Indication: HYPERCHOLESTEROLAEMIA
     Route: 048
     Dates: start: 20030101, end: 20130808
  2. AMLODIPINE 5MG (AMLODIPINE) UNKNOWN, 5MG [Concomitant]
     Indication: PRODUCT USED FOR UNKNOWN INDICATION
  3. CANDESARTAN CILEXETIL (CANDESARTAN CILEXETIL)? [Concomitant]
  4. TAMSULOSIN HYDROCHLORIDE (TAMSULOSIN HYDROCHLORIDE) [Concomitant]

REACTIONS (10)
  - Arthritis [None]
  - Adverse drug reaction [None]
  - Arthralgia [None]
  - Pain in extremity [None]
  - Peripheral swelling [None]
  - Joint swelling [None]
  - Musculoskeletal stiffness [None]
  - Myalgia [None]
  - Drug prescribing error [None]
  - Drug interaction [None]
